FAERS Safety Report 5786285-8 (Version None)
Quarter: 2008Q2

REPORT INFORMATION
  Report Type: 
  Country: None (occurrence: None)
  Receive Date: 20080624
  Receipt Date: 20080617
  Transmission Date: 20081010
  Serious: Yes (Life-Threatening, Hospitalization, Other)
  Sender: FDA-Public Use
  Company Number: FR-PFIZER INC-2008045443

PATIENT
  Sex: Male
  Weight: 95 kg

DRUGS (7)
  1. TAHOR [Suspect]
     Route: 048
     Dates: start: 20051021, end: 20080125
  2. OMEPRAZOLE [Interacting]
     Route: 048
     Dates: start: 20051021, end: 20080125
  3. PLAVIX [Concomitant]
     Route: 048
  4. RAMIPRIL [Concomitant]
  5. BIPRETERAX [Concomitant]
     Route: 048
  6. DETENSIEL [Concomitant]
     Route: 048
     Dates: start: 20051021
  7. EZETIMIBE [Concomitant]
     Route: 048
     Dates: start: 20051021

REACTIONS (2)
  - DRUG INTERACTION [None]
  - THROMBOSIS [None]
